FAERS Safety Report 6163355-6 (Version None)
Quarter: 2009Q2

REPORT INFORMATION
  Report Type: 
  Country: None (occurrence: None)
  Receive Date: 20090420
  Receipt Date: 20090409
  Transmission Date: 20091009
  Serious: Yes (Other)
  Sender: FDA-Public Use
  Company Number: SPV1-2009-00678

PATIENT
  Sex: Male

DRUGS (2)
  1. FOSRENOL [Suspect]
     Dosage: ORAL
     Route: 048
     Dates: start: 20080301
  2. ASPIRIN [Concomitant]

REACTIONS (4)
  - FAECES DISCOLOURED [None]
  - GASTRITIS [None]
  - GASTROOESOPHAGEAL REFLUX DISEASE [None]
  - HAEMOGLOBIN DECREASED [None]
